FAERS Safety Report 5124182-1 (Version None)
Quarter: 2006Q4

REPORT INFORMATION
  Report Type: 
  Country: None (occurrence: None)
  Receive Date: 20061010
  Receipt Date: 20060712
  Transmission Date: 20070319
  Serious: No
  Sender: FDA-Public Use
  Company Number: US-BRISTOL-MYERS SQUIBB COMPANY-13439880

PATIENT
  Age: 87 Year
  Sex: Male
  Weight: 80 kg

DRUGS (5)
  1. AVAPRO [Suspect]
     Indication: HYPERTENSION
     Dates: start: 20050101, end: 20060712
  2. PROBENECID [Concomitant]
  3. ZOCOR [Concomitant]
  4. TYLENOL [Concomitant]
  5. ALBUTEROL [Concomitant]

REACTIONS (2)
  - COUGH [None]
  - PULMONARY CONGESTION [None]
